FAERS Safety Report 4884958-2 (Version None)
Quarter: 2006Q1

REPORT INFORMATION
  Report Type: 
  Country: None (occurrence: None)
  Receive Date: 20060119
  Receipt Date: 20060111
  Transmission Date: 20060701
  Serious: Yes (Hospitalization)
  Sender: FDA-Public Use
  Company Number: US-JNJFOC-20040406391

PATIENT
  Sex: Female

DRUGS (10)
  1. DURAGESIC-100 [Suspect]
     Route: 062
  2. DURAGESIC-100 [Suspect]
     Route: 062
  3. DURAGESIC-100 [Suspect]
     Route: 062
  4. DURAGESIC-100 [Suspect]
     Route: 062
  5. DURAGESIC-100 [Suspect]
     Route: 062
  6. DURAGESIC-100 [Suspect]
     Route: 062
  7. DURAGESIC-100 [Suspect]
     Route: 062
  8. DURAGESIC-100 [Suspect]
     Route: 062
  9. DURAGESIC-100 [Suspect]
     Route: 062
  10. DURAGESIC-100 [Suspect]
     Route: 062

REACTIONS (20)
  - ABDOMINAL PAIN [None]
  - ANOREXIA [None]
  - DEPRESSION [None]
  - DIARRHOEA [None]
  - DRUG ADMINISTRATION ERROR [None]
  - HERPES ZOSTER [None]
  - MIGRAINE [None]
  - NAUSEA [None]
  - PAIN [None]
  - PNEUMONIA [None]
  - POLLAKIURIA [None]
  - POST-TRAUMATIC STRESS DISORDER [None]
  - SINUS TACHYCARDIA [None]
  - SOMNOLENCE [None]
  - SUICIDAL IDEATION [None]
  - TREMOR [None]
  - URINARY TRACT INFECTION [None]
  - VENTRICULAR EXTRASYSTOLES [None]
  - VOMITING [None]
  - WEIGHT DECREASED [None]
